FAERS Safety Report 8605122 (Version 2)
Quarter: 2012Q4

REPORT INFORMATION
  Report Type: 
  Country: US (occurrence: US)
  Receive Date: 20120608
  Receipt Date: 20121008
  Transmission Date: 20130627
  Serious: Yes (Other)
  Sender: FDA-Public Use
  Company Number: US-TEVA-341857USA

PATIENT
  Age: 27 Year
  Sex: Female
  Weight: 77.18 kg

DRUGS (2)
  1. PLAN B ONE-STEP [Suspect]
     Indication: POST COITAL CONTRACEPTION
     Dosage: 1.5 Milligram Daily;
     Route: 048
     Dates: start: 20120511, end: 20120511
  2. PSEUDOEPHEDRINE [Concomitant]
     Indication: SEASONAL ALLERGY

REACTIONS (8)
  - Abortion spontaneous [Recovered/Resolved]
  - Ear pain [Unknown]
  - Human chorionic gonadotropin increased [Recovered/Resolved]
  - Malaise [Unknown]
  - Depression [Unknown]
  - Haemorrhage [Unknown]
  - Exposure during pregnancy [Recovered/Resolved]
  - Pregnancy [Recovered/Resolved]
